FAERS Safety Report 22115288 (Version 1)
Quarter: 2023Q1

REPORT INFORMATION
  Report Type: Spontaneous
  Country: US (occurrence: None)
  Receive Date: 20230318
  Receipt Date: 20230318
  Transmission Date: 20230418
  Serious: Yes (Hospitalization)
  Sender: FDA-Public Use
  Company Number: None

PATIENT
  Age: 26 Year
  Sex: Male
  Weight: 63 kg

DRUGS (6)
  1. RINVOQ [Suspect]
     Active Substance: UPADACITINIB
     Indication: Colitis ulcerative
     Dosage: 1 TABLET DAILY ORAL
     Route: 048
     Dates: start: 20230316, end: 20230317
  2. CALCIUM CITRATE [Concomitant]
     Active Substance: CALCIUM CITRATE
  3. VITAMIN D3 [Concomitant]
     Active Substance: CHOLECALCIFEROL
  4. MELATONIN [Concomitant]
     Active Substance: MELATONIN
  5. GABA Chewable [Concomitant]
  6. PEPPERMINT OIL [Concomitant]
     Active Substance: PEPPERMINT OIL

REACTIONS (12)
  - Pain in extremity [None]
  - Paraesthesia [None]
  - Headache [None]
  - Dizziness [None]
  - Nasal obstruction [None]
  - Back pain [None]
  - Painful respiration [None]
  - Burning sensation [None]
  - Insomnia [None]
  - Rectal haemorrhage [None]
  - Mucous stools [None]
  - Hypersensitivity [None]

NARRATIVE: CASE EVENT DATE: 20230317
